FAERS Safety Report 9093657 (Version 1)
Quarter: 2013Q1

REPORT INFORMATION
  Report Type: Report from Study
  Country: US (occurrence: US)
  Receive Date: 20130131
  Receipt Date: 20130131
  Transmission Date: 20140127
  Serious: Yes (Hospitalization)
  Sender: FDA-Public Use
  Company Number: US-ABBOTT-12P-163-1004112-00

PATIENT
  Age: 72 Year
  Sex: Female
  Weight: 59.02 kg

DRUGS (3)
  1. HUMIRA [Suspect]
     Indication: PSORIASIS
     Dates: start: 20120101, end: 20121102
  2. PREDNISONE [Concomitant]
     Indication: PRODUCT USED FOR UNKNOWN INDICATION
     Dates: start: 20121022, end: 20121028
  3. DIOVAN [Concomitant]
     Indication: CEREBRAL HAEMORRHAGE

REACTIONS (10)
  - Chest pain [Recovering/Resolving]
  - Arthralgia [Not Recovered/Not Resolved]
  - Joint swelling [Not Recovered/Not Resolved]
  - Local swelling [Not Recovered/Not Resolved]
  - Local swelling [Not Recovered/Not Resolved]
  - Local swelling [Recovering/Resolving]
  - Lupus-like syndrome [Not Recovered/Not Resolved]
  - C-reactive protein increased [Unknown]
  - Antinuclear antibody positive [Unknown]
  - Lupus-like syndrome [Not Recovered/Not Resolved]
